FAERS Safety Report 22296486 (Version 1)
Quarter: 2023Q2

REPORT INFORMATION
  Report Type: Spontaneous
  Country: US (occurrence: None)
  Receive Date: 20230505
  Receipt Date: 20230505
  Transmission Date: 20230721
  Serious: Yes (Other)
  Sender: FDA-Public Use
  Company Number: None

PATIENT
  Age: 43 Year
  Sex: Female
  Weight: 99.79 kg

DRUGS (2)
  1. INSULIN DEGLUDEC [Suspect]
     Active Substance: INSULIN DEGLUDEC
     Dosage: FREQUENCY : DAILY;?
     Route: 058
     Dates: start: 20230216, end: 20230503
  2. BASAGLAR KWIKPEN [Suspect]
     Active Substance: INSULIN GLARGINE
     Indication: Type 2 diabetes mellitus
     Dosage: FREQUENCY : DAILY;?
     Route: 058
     Dates: start: 20210131, end: 20220603

REACTIONS (4)
  - Pruritus [None]
  - Urticaria [None]
  - Skin burning sensation [None]
  - Product substitution issue [None]

NARRATIVE: CASE EVENT DATE: 20230504
